FAERS Safety Report 5881144-4 (Version None)
Quarter: 2008Q3

REPORT INFORMATION
  Report Type: 
  Country: None (occurrence: None)
  Receive Date: 20080910
  Receipt Date: 20080825
  Transmission Date: 20090109
  Serious: Yes (Other)
  Sender: FDA-Public Use
  Company Number: SP-2006-002784

PATIENT
  Age: 80 Year
  Sex: Female

DRUGS (5)
  1. OLMESARTAN MEDOXOMIL [Suspect]
     Indication: HYPERTENSION
     Dosage: (1 IN 1 D), PER ORAL
     Route: 048
  2. CIPRAMIL (CITALOPRAM HYDROCHLORIDE) (CITALOPRAM HYDROCHLORIDE) I [Suspect]
     Indication: COGNITIVE DISORDER
     Dosage: 1 IN 1 D
     Dates: start: 20050901, end: 20050909
  3. CIPRAMIL (CITALOPRAM HYDROCHLORIDE) (CITALOPRAM HYDROCHLORIDE) I [Suspect]
     Indication: DEPRESSION
     Dosage: 1 IN 1 D
     Dates: start: 20050901, end: 20050909
  4. CIPRAMIL (CITALOPRAM HYDROCHLORIDE) (CITALOPRAM HYDROCHLORIDE) I [Suspect]
     Indication: INSOMNIA
     Dosage: 1 IN 1 D
     Dates: start: 20050901, end: 20050909
  5. BENDROFLUAZIDE (BENDROFLUMETHIAZIDE) (BENDROFLUMETHIAZIDE) [Suspect]
     Dates: end: 20050909

REACTIONS (1)
  - HYPONATRAEMIA [None]
